FAERS Safety Report 6230125-X (Version None)
Quarter: 2009Q2

REPORT INFORMATION
  Report Type: 
  Country: None (occurrence: None)
  Receive Date: 20090615
  Receipt Date: 20090609
  Transmission Date: 20091009
  Serious: Yes (Death)
  Sender: FDA-Public Use
  Company Number: US-BRISTOL-MYERS SQUIBB COMPANY-14660609

PATIENT
  Age: 46 Year
  Sex: Female

DRUGS (2)
  1. DASATINIB [Suspect]
     Indication: NON-SMALL CELL LUNG CANCER
     Dosage: TAKEN 2 DOSES DOSE REDUCED ON UNKNOWN DATE
  2. CETUXIMAB [Suspect]
     Indication: NON-SMALL CELL LUNG CANCER

REACTIONS (1)
  - SUDDEN DEATH [None]
